FAERS Safety Report 14212656 (Version 1)
Quarter: 2017Q4

REPORT INFORMATION
  Report Type: Spontaneous
  Country: US (occurrence: US)
  Receive Date: 20171122
  Receipt Date: 20171122
  Transmission Date: 20180321
  Serious: Yes (Other)
  Sender: FDA-Public Use
  Company Number: US-ASTELLAS-2017US047524

PATIENT
  Age: 18 Year
  Sex: Male

DRUGS (4)
  1. VORICONAZOLE. [Suspect]
     Active Substance: VORICONAZOLE
     Indication: PRODUCT USED FOR UNKNOWN INDICATION
     Dosage: UNK, UNKNOWN FREQ.
     Route: 065
  2. ONDANSETRON [Suspect]
     Active Substance: ONDANSETRON
     Indication: PRODUCT USED FOR UNKNOWN INDICATION
     Dosage: UNK UNK, UNKNOWN FREQ.
     Route: 065
  3. TACROLIMUS. [Suspect]
     Active Substance: TACROLIMUS
     Indication: BONE MARROW TRANSPLANT
     Dosage: UNK, UNKNOWN FREQ.
     Route: 065
  4. CITALOPRAM [Suspect]
     Active Substance: CITALOPRAM HYDROBROMIDE
     Indication: PRODUCT USED FOR UNKNOWN INDICATION
     Dosage: UNK UNK, UNKNOWN FREQ.
     Route: 065

REACTIONS (18)
  - Arrhythmia supraventricular [Recovered/Resolved]
  - Respiratory failure [Unknown]
  - Septic shock [Unknown]
  - Hyperglycaemia [Unknown]
  - Pericardial effusion [Unknown]
  - Underweight [Unknown]
  - Off label use [Unknown]
  - Graft versus host disease in gastrointestinal tract [Unknown]
  - Tachyarrhythmia [Recovered/Resolved]
  - Atrial flutter [Recovered/Resolved]
  - Hypocalcaemia [Unknown]
  - Pancytopenia [Unknown]
  - Muscle atrophy [Unknown]
  - Liver function test abnormal [Unknown]
  - Venoocclusive liver disease [Unknown]
  - Electrocardiogram QT prolonged [Recovered/Resolved]
  - Acute kidney injury [Unknown]
  - Renal failure [Unknown]
